FAERS Safety Report 6528767-7 (Version None)
Quarter: 2010Q1

REPORT INFORMATION
  Report Type: 
  Country: None (occurrence: None)
  Receive Date: 20100106
  Receipt Date: 20091111
  Transmission Date: 20100710
  Serious: Yes (Hospitalization)
  Sender: FDA-Public Use
  Company Number: CHPA2009US24410

PATIENT
  Sex: Male

DRUGS (1)
  1. VOLTAREN [Suspect]
     Dosage: UNK, UNK
     Route: 061

REACTIONS (4)
  - GASTROINTESTINAL DISORDER [None]
  - IRON DEFICIENCY ANAEMIA [None]
  - SMALL INTESTINAL OBSTRUCTION [None]
  - SMALL INTESTINAL RESECTION [None]
